FAERS Safety Report 5827318-X (Version None)
Quarter: 2008Q3

REPORT INFORMATION
  Report Type: 
  Country: None (occurrence: None)
  Receive Date: 20080724
  Receipt Date: 20080709
  Transmission Date: 20090109
  Serious: Yes (Hospitalization)
  Sender: FDA-Public Use
  Company Number: DSA_32146_2008

PATIENT
  Age: 47 Year
  Sex: Female

DRUGS (4)
  1. ORFIDAL (ORFIDAL - LORAZEPAM) (NOT SPECIFIED) [Suspect]
     Indication: DRUG USE FOR UNKNOWN INDICATION
     Dosage: (1 MG QD ORAL)
     Route: 048
     Dates: start: 20080201, end: 20080410
  2. ANTABUSE [Suspect]
     Indication: ALCOHOLISM
     Dosage: 500 MG BID ORAL
     Route: 048
     Dates: start: 20080201, end: 20080410
  3. LEXATIN (LEXATIN - BROMAZEPAM) (NOT SPECIFIED) [Suspect]
     Indication: DRUG USE FOR UNKNOWN INDICATION
     Dosage: DF ORAL
     Route: 048
     Dates: start: 20080201
  4. PROZAC [Suspect]
     Indication: DEPRESSION
     Dosage: 20 MG QD ORAL
     Route: 048
     Dates: start: 20080201, end: 20080410

REACTIONS (5)
  - BRADYKINESIA [None]
  - BRADYPHRENIA [None]
  - CYTOLYTIC HEPATITIS [None]
  - HEPATOMEGALY [None]
  - PORTAL HYPERTENSION [None]
